FAERS Safety Report 9164993 (Version 1)
Quarter: 2013Q1

REPORT INFORMATION
  Report Type: Spontaneous
  Country: US (occurrence: US)
  Receive Date: 20130315
  Receipt Date: 20130315
  Transmission Date: 20140127
  Serious: Yes (Hospitalization)
  Sender: FDA-Public Use
  Company Number: US-BAYER-2013-031175

PATIENT
  Age: 33 Year
  Sex: Female
  Weight: 140.59 kg

DRUGS (8)
  1. YASMIN [Suspect]
  2. LEXAPRO [Concomitant]
     Dosage: 10MG, 2 DAILY
  3. ELIDEL [Concomitant]
  4. KEFLEX [Concomitant]
  5. CEPHALEXIN [Concomitant]
     Dosage: 500 MG, UNK
  6. HYDROCODONE W/APAP [Concomitant]
     Dosage: 7.5/650MG
  7. OXYCODONE/APAP [Concomitant]
     Dosage: 5/325MG
  8. CLINDAMYCIN [Concomitant]
     Dosage: 150 MG, UNK

REACTIONS (2)
  - Pulmonary embolism [Recovering/Resolving]
  - Deep vein thrombosis [Recovered/Resolved]
